FAERS Safety Report 14778236 (Version 2)
Quarter: 2018Q2

REPORT INFORMATION
  Report Type: Spontaneous
  Country: US (occurrence: US)
  Receive Date: 20180419
  Receipt Date: 20180629
  Transmission Date: 20180711
  Serious: No
  Sender: FDA-Public Use
  Company Number: US-PFIZER INC-2017003959

PATIENT
  Age: 64 Year
  Sex: Female
  Weight: 73 kg

DRUGS (14)
  1. DOCETAXEL. [Suspect]
     Active Substance: DOCETAXEL
     Indication: BREAST CANCER FEMALE
     Dosage: 140 MG, CYCLIC (6 CYCLES,EVERY 3 WEEKS)
     Dates: start: 20111201, end: 20120315
  2. PARAPLATIN [Concomitant]
     Active Substance: CARBOPLATIN
     Dosage: UNK UNK, EVERY 3 WEEKS FOR 1 YEARS
  3. HERCEPTIN [Concomitant]
     Active Substance: TRASTUZUMAB
     Dosage: UNK UNK, EVERY 3 WEEKS FOR 1 YEARS
  4. CARBOPLATIN. [Concomitant]
     Active Substance: CARBOPLATIN
  5. NEULASTA [Concomitant]
     Active Substance: PEGFILGRASTIM
  6. DOCETAXEL. [Suspect]
     Active Substance: DOCETAXEL
     Indication: INVASIVE DUCTAL BREAST CARCINOMA
  7. DEXAMETHASONE. [Concomitant]
     Active Substance: DEXAMETHASONE
  8. EMEND [Concomitant]
     Active Substance: APREPITANT
  9. DIPHENHYDRAMINE HCL [Concomitant]
     Active Substance: DIPHENHYDRAMINE HYDROCHLORIDE
  10. DEXAMETHASONE. [Concomitant]
     Active Substance: DEXAMETHASONE
  11. ALOXI [Concomitant]
     Active Substance: PALONOSETRON HYDROCHLORIDE
  12. LISINOPRIL. [Concomitant]
     Active Substance: LISINOPRIL
  13. COMPAZINE /00013302/ [Concomitant]
     Active Substance: PROCHLORPERAZINE EDISYLATE
  14. K-DUR [Concomitant]
     Active Substance: POTASSIUM CHLORIDE

REACTIONS (4)
  - Hair colour changes [Not Recovered/Not Resolved]
  - Hair texture abnormal [Not Recovered/Not Resolved]
  - Hair disorder [Not Recovered/Not Resolved]
  - Alopecia [Not Recovered/Not Resolved]

NARRATIVE: CASE EVENT DATE: 201209
